FAERS Safety Report 4774289-3 (Version None)
Quarter: 2005Q3

REPORT INFORMATION
  Report Type: 
  Country: None (occurrence: None)
  Receive Date: 20050914
  Receipt Date: 20050307
  Transmission Date: 20060218
  Serious: Yes (Hospitalization)
  Sender: FDA-Public Use
  Company Number: 163-20785-05030160

PATIENT
  Age: 66 Year
  Sex: Male

DRUGS (1)
  1. THALOMID [Suspect]
     Indication: RENAL CELL CARCINOMA STAGE UNSPECIFIED
     Dosage: 200 MG, DAILY, ORAL;  100-200 MG, ALTERNATING WEEKLY, ORAL
     Route: 048
     Dates: start: 20041101

REACTIONS (2)
  - ANAEMIA [None]
  - THROMBOCYTOPENIA [None]
